FAERS Safety Report 4914423-5 (Version None)
Quarter: 2006Q1

REPORT INFORMATION
  Report Type: 
  Country: None (occurrence: None)
  Receive Date: 20060216
  Receipt Date: 20060206
  Transmission Date: 20060701
  Serious: Yes (Hospitalization)
  Sender: FDA-Public Use
  Company Number: US-ABBOTT-06P-163-0324135-00

PATIENT
  Sex: Male
  Weight: 63.106 kg

DRUGS (6)
  1. HUMIRA [Suspect]
     Indication: RHEUMATOID ARTHRITIS
     Route: 058
     Dates: start: 20050201
  2. LEVOTHYROXINE SODIUM [Concomitant]
     Indication: HYPOTHYROIDISM
     Route: 048
  3. METHOTREXATE SODIUM [Concomitant]
     Indication: RHEUMATOID ARTHRITIS
     Dosage: 2.5MG TABS. 8 TABS 1/DAY/WK
     Route: 048
  4. SPIREVA INHALER [Concomitant]
     Indication: EMPHYSEMA
     Route: 055
     Dates: start: 20040101
  5. SERETIDE MITE [Concomitant]
     Indication: EMPHYSEMA
     Route: 055
     Dates: start: 20040101
  6. VITAMINS [Concomitant]
     Indication: VITAMIN SUPPLEMENTATION
     Route: 048

REACTIONS (3)
  - FALL [None]
  - PNEUMOTHORAX TRAUMATIC [None]
  - RIB FRACTURE [None]
